FAERS Safety Report 21441644 (Version 1)
Quarter: 2022Q4

REPORT INFORMATION
  Report Type: Spontaneous
  Country: US (occurrence: US)
  Receive Date: 20221011
  Receipt Date: 20221011
  Transmission Date: 20230113
  Serious: No
  Sender: FDA-Public Use
  Company Number: US-SUNOVION-2022SUN002886AA

PATIENT
  Sex: Female

DRUGS (1)
  1. LATUDA [Suspect]
     Active Substance: LURASIDONE HYDROCHLORIDE
     Dosage: 160 MG, QD  (40 MG ALONG WITH 120 MG)
     Route: 048

REACTIONS (2)
  - Drug effect less than expected [Unknown]
  - Flat affect [Unknown]
